FAERS Safety Report 4403500-3 (Version None)
Quarter: 2004Q3

REPORT INFORMATION
  Report Type: 
  Country: None (occurrence: None)
  Receive Date: 20040719
  Receipt Date: 20040709
  Transmission Date: 20050211
  Serious: Yes (Other)
  Sender: FDA-Public Use
  Company Number: S04-USA-00357-01

PATIENT
  Age: 35 Year
  Sex: Female

DRUGS (2)
  1. CERVIDIL [Suspect]
     Indication: LABOUR INDUCTION
     Dates: start: 20020804, end: 20020801
  2. LOVENOX [Concomitant]

REACTIONS (5)
  - DRUG EXPOSURE DURING PREGNANCY [None]
  - MEDICAL OBSERVATION ABNORMAL [None]
  - PREMATURE SEPARATION OF PLACENTA [None]
  - STILLBIRTH [None]
  - UMBILICAL CORD AROUND NECK [None]
